FAERS Safety Report 8533030-9 (Version None)
Quarter: 2012Q2

REPORT INFORMATION
  Report Type: 
  Country: None (occurrence: None)
  Receive Date: 20120412
  Receipt Date: 20100923
  Transmission Date: 20120825
  Serious: Yes (Other)
  Sender: FDA-Public Use
  Company Number: PHEH2007US09151

PATIENT
  Age: 45 Year
  Sex: Female

DRUGS (14)
  1. TAXOL [Concomitant]
  2. TAXOTERE [Concomitant]
  3. CLINDAMYCIN [Concomitant]
  4. TAMOXIFEN CITRATE [Concomitant]
  5. BENADRYL [Concomitant]
  6. ZOMETA [Suspect]
     Dosage: , INTRAVENOUS
     Route: 042
  7. RADIATION THERAPY (NO INGREDIENTS/SUBSTANCES) [Concomitant]
  8. IBUPROFEN [Concomitant]
  9. ELAVIL [Concomitant]
  10. AMOXICILLIN [Concomitant]
  11. AREDIA [Suspect]
     Dosage: 90 MG, UNK, INTRAVENOUS
     Route: 042
     Dates: start: 20010101
  12. DECADRON [Concomitant]
  13. PEPCID [Concomitant]
  14. ULTRAM [Concomitant]

REACTIONS (19)
  - POLYP COLORECTAL [None]
  - OSTEOMYELITIS CHRONIC [None]
  - ENDODONTIC PROCEDURE [None]
  - INSOMNIA [None]
  - IMPAIRED HEALING [None]
  - TOOTH EXTRACTION [None]
  - SINUS DISORDER [None]
  - BLOOD GLUCOSE INCREASED [None]
  - PAIN IN JAW [None]
  - CELLULITIS [None]
  - OSTEONECROSIS OF JAW [None]
  - FULL BLOOD COUNT ABNORMAL [None]
  - OEDEMA MUCOSAL [None]
  - ABSCESS DRAINAGE [None]
  - SWELLING [None]
  - INFUSION SITE HAEMORRHAGE [None]
  - DEPRESSION [None]
  - RENAL CYST [None]
  - ANXIETY [None]
